FAERS Safety Report 6662148-0 (Version None)
Quarter: 2010Q1

REPORT INFORMATION
  Report Type: 
  Country: None (occurrence: None)
  Receive Date: 20100331
  Receipt Date: 20100325
  Transmission Date: 20100710
  Serious: Yes (Hospitalization)
  Sender: FDA-Public Use
  Company Number: Z0003698A

PATIENT
  Sex: Female
  Weight: 56.3 kg

DRUGS (3)
  1. OFATUMUMAB [Suspect]
     Route: 042
     Dates: start: 20100203
  2. FLUDARABINE PHOSPHATE [Suspect]
     Route: 042
     Dates: start: 20100204
  3. CYCLOPHOSPHAMIDE [Suspect]
     Route: 042
     Dates: start: 20100204

REACTIONS (1)
  - FEBRILE NEUTROPENIA [None]
